FAERS Safety Report 8615614-2 (Version None)
Quarter: 2012Q3

REPORT INFORMATION
  Report Type: 
  Country: None (occurrence: None)
  Receive Date: 20120823
  Receipt Date: 20120813
  Transmission Date: 20120928
  Serious: Yes (Other)
  Sender: FDA-Public Use
  Company Number: US-ELI_LILLY_AND_COMPANY-US201206007452

PATIENT
  Sex: Female
  Weight: 63 kg

DRUGS (10)
  1. FORTEO [Suspect]
     Indication: OSTEOPOROSIS
     Dosage: 20 UG, QD
     Route: 058
     Dates: start: 20120417
  2. ALPRAZOLAM [Concomitant]
     Dosage: 0.25 MG, PRN
  3. CITALOPRAM HYDROBROMIDE [Concomitant]
     Dosage: UNK, QD
     Route: 048
  4. VITAMIN D [Concomitant]
     Dosage: 1000 U, QD
     Route: 048
  5. EXCEDRIN                                /USA/ [Concomitant]
     Dosage: UNK, QD
     Route: 048
  6. WELLBUTRIN [Concomitant]
     Dosage: 150 MG, QD
  7. REQUIP [Concomitant]
     Dosage: 0.5 MG, EACH EVENING
     Route: 048
  8. HYDROCHLOROTHIAZIDE [Concomitant]
     Dosage: 25 MG, QD
     Route: 048
  9. VITAMIN TAB [Concomitant]
     Dosage: UNK
  10. CALCIUM [Concomitant]
     Dosage: UNK, TID
     Route: 048

REACTIONS (1)
  - BREAST CANCER [None]
